FAERS Safety Report 17392280 (Version 2)
Quarter: 2020Q2

REPORT INFORMATION
  Report Type: Report from Study
  Country: US (occurrence: US)
  Receive Date: 20200207
  Receipt Date: 20200414
  Transmission Date: 20200713
  Serious: Yes (Life-Threatening)
  Sender: FDA-Public Use
  Company Number: NVSC2020US030320

PATIENT
  Sex: Male

DRUGS (2)
  1. ILARIS [Suspect]
     Active Substance: CANAKINUMAB
     Indication: STILL^S DISEASE
     Dosage: 300 MG, Q4W
     Route: 058
     Dates: start: 20161116
  2. ILARIS [Suspect]
     Active Substance: CANAKINUMAB
     Indication: HAEMOPHAGOCYTIC LYMPHOHISTIOCYTOSIS

REACTIONS (1)
  - Suicidal ideation [Recovering/Resolving]
